FAERS Safety Report 8200113-2 (Version None)
Quarter: 2012Q1

REPORT INFORMATION
  Report Type: 
  Country: None (occurrence: None)
  Receive Date: 20120306
  Receipt Date: 20120220
  Transmission Date: 20120608
  Serious: Yes (Other)
  Sender: FDA-Public Use
  Company Number: US-1190683

PATIENT
  Age: 58 Year
  Sex: Male

DRUGS (5)
  1. TOBRADEX [Suspect]
     Indication: POSTOPERATIVE CARE
     Dosage: (3 GTT QD OS OPHTHALMIC) ; (3 GTT QD OS OPHTHALMIC)
     Route: 047
  2. TOBRADEX [Suspect]
     Indication: POSTOPERATIVE CARE
     Dosage: (1 GTT TID OS OPHTHALMIC)
     Route: 047
  3. TOBRADEX [Suspect]
  4. ASPIRIN [Concomitant]
  5. SIMVASTATIN [Concomitant]

REACTIONS (2)
  - DIPLOPIA [None]
  - VISION BLURRED [None]
